FAERS Safety Report 4799889-6 (Version None)
Quarter: 2006Q1

REPORT INFORMATION
  Report Type: 
  Country: None (occurrence: None)
  Receive Date: 20051013
  Receipt Date: 20051007
  Transmission Date: 20060701
  Serious: Yes (Hospitalization)
  Sender: FDA-Public Use
  Company Number: HQWYE934110OCT05

PATIENT
  Sex: Female

DRUGS (3)
  1. EFFEXOR [Suspect]
     Dosage: ORAL
     Route: 048
  2. ETHANOL (ETHANOL,) [Suspect]
     Dosage: 1 BOTTLE OF PORT ORAL
     Route: 048
  3. TEMAZEPAM (TEMAZEPAM, CAPSULE) [Suspect]
     Dosage: 4 TABLET 1X PER 1 DAY

REACTIONS (5)
  - AGGRESSION [None]
  - HALLUCINATION, AUDITORY [None]
  - INTENTIONAL SELF-INJURY [None]
  - PSYCHOTIC DISORDER [None]
  - SUICIDAL IDEATION [None]
